FAERS Safety Report 4527199-0 (Version None)
Quarter: 2004Q4

REPORT INFORMATION
  Report Type: 
  Country: None (occurrence: None)
  Receive Date: 20041214
  Receipt Date: 20041214
  Transmission Date: 20050328
  Serious: Yes (Other)
  Sender: FDA-Public Use
  Company Number: None

PATIENT
  Sex: Male
  Weight: 79.3795 kg

DRUGS (3)
  1. ABILIFY [Suspect]
     Indication: DELUSION
     Dosage: 15 MG P.O. DAILY WITH EVENING MEAL
     Route: 048
     Dates: start: 20030923
  2. NEURONTIN [Concomitant]
  3. EFFEXOR [Concomitant]

REACTIONS (7)
  - ABDOMINAL DISCOMFORT [None]
  - ALCOHOL USE [None]
  - DECREASED APPETITE [None]
  - IMPAIRED WORK ABILITY [None]
  - NAUSEA [None]
  - PANCREATITIS [None]
  - REFUSAL OF TREATMENT BY PATIENT [None]
